FAERS Safety Report 13984268 (Version 1)
Quarter: 2017Q3

REPORT INFORMATION
  Report Type: Spontaneous
  Country: GB (occurrence: GB)
  Receive Date: 20170918
  Receipt Date: 20170918
  Transmission Date: 20171128
  Serious: Yes (Disabling)
  Sender: FDA-Public Use
  Company Number: GB-009507513-1709GBR008420

PATIENT
  Age: 69 Year
  Sex: Female
  Weight: 77 kg

DRUGS (7)
  1. CODEINE PHOSPHATE [Concomitant]
     Active Substance: CODEINE PHOSPHATE
     Dosage: TAKE ONE OR TWO FOUR TIMES DAILY.
     Dates: start: 20170615, end: 20170622
  2. EZETIMIBE. [Suspect]
     Active Substance: EZETIMIBE
     Dates: start: 20170522
  3. DIAZEPAM. [Concomitant]
     Active Substance: DIAZEPAM
     Dosage: ONE OR TWO,
     Dates: start: 20170615, end: 20170715
  4. ALBUTEROL SULFATE. [Concomitant]
     Active Substance: ALBUTEROL SULFATE
     Dosage: ONE TO TWO PUFFS UP TO 4 TIMES DAILY
     Route: 055
     Dates: start: 20170117
  5. SUKKARTO [Concomitant]
     Active Substance: METFORMIN HYDROCHLORIDE
     Dates: start: 20170607
  6. CLENIL MODULITE [Concomitant]
     Active Substance: BECLOMETHASONE DIPROPIONATE
     Dosage: ONE TO TWO PUFFS TWICE DAILY.
     Route: 055
     Dates: start: 20170124
  7. LUSTRAL [Concomitant]
     Active Substance: SERTRALINE HYDROCHLORIDE
     Dates: start: 20170309

REACTIONS (2)
  - Depression suicidal [Recovering/Resolving]
  - Mood altered [Recovering/Resolving]

NARRATIVE: CASE EVENT DATE: 20170525
